FAERS Safety Report 18092979 (Version 1)
Quarter: 2020Q3

REPORT INFORMATION
  Report Type: Spontaneous
  Country: US (occurrence: US)
  Receive Date: 20200730
  Receipt Date: 20200730
  Transmission Date: 20201103
  Serious: Yes (Other)
  Sender: FDA-Public Use
  Company Number: US-PFIZER INC-2020278862

PATIENT
  Age: 60 Year
  Sex: Female
  Weight: 50.4 kg

DRUGS (14)
  1. VALSARTAN. [Concomitant]
     Active Substance: VALSARTAN
     Dosage: UNK
  2. OMEPRAZOLE. [Concomitant]
     Active Substance: OMEPRAZOLE
     Dosage: UNK
  3. MIDAZOLAM. [Suspect]
     Active Substance: MIDAZOLAM
     Indication: ANAESTHESIA
     Dosage: 2 MG
     Route: 042
  4. MIDAZOLAM. [Suspect]
     Active Substance: MIDAZOLAM
     Indication: SEDATION
  5. FENTANYL. [Concomitant]
     Active Substance: FENTANYL
     Indication: PREMEDICATION
  6. BUPIVACAINE HCL WITH EPINEPHRINE [Concomitant]
     Dosage: UNK (10 ML OF 0.5% BUPIVACAINE PLAIN WITHOUT INCIDENT)
  7. PAROXETINE. [Concomitant]
     Active Substance: PAROXETINE
     Dosage: UNK
  8. BUPIVACAINE HCL WITH EPINEPHRINE [Concomitant]
     Dosage: UNK (25 ML OF 0.5% BUPIVACAINE WITH 1:200,000 EPINEPHRINE )
  9. BUPROPION. [Concomitant]
     Active Substance: BUPROPION
     Dosage: UNK
  10. MIDAZOLAM. [Suspect]
     Active Substance: MIDAZOLAM
     Indication: PREMEDICATION
  11. FENTANYL. [Concomitant]
     Active Substance: FENTANYL
     Indication: ANAESTHESIA
     Dosage: 100 UG
  12. BUPIVACAINE HCL WITH EPINEPHRINE [Concomitant]
     Indication: NERVE BLOCK
     Dosage: UNK (5 ML OF 0.5% BUPIVACAINE WITH 1:200,000 EPINEPHRINE )
  13. DILTIAZEM. [Concomitant]
     Active Substance: DILTIAZEM
     Dosage: UNK
  14. ALBUTEROL [SALBUTAMOL SULFATE] [Concomitant]
     Active Substance: ALBUTEROL SULFATE
     Dosage: UNK (INHALER)
     Route: 055

REACTIONS (1)
  - Extrapyramidal disorder [Recovered/Resolved]
